FAERS Safety Report 7508624-X (Version None)
Quarter: 2011Q2

REPORT INFORMATION
  Report Type: 
  Country: None (occurrence: None)
  Receive Date: 20110527
  Receipt Date: 20110309
  Transmission Date: 20111010
  Serious: No
  Sender: FDA-Public Use
  Company Number: A0918195A

PATIENT
  Age: 56 Year
  Sex: Female
  Weight: 57.2 kg

DRUGS (6)
  1. FLOLAN [Suspect]
     Dates: start: 20041118
  2. FUROSEMIDE [Concomitant]
  3. COMBIGAN [Concomitant]
  4. SPIRONOLACTONE [Concomitant]
  5. PROTONIX [Concomitant]
  6. ACETAMINOPHEN [Concomitant]

REACTIONS (2)
  - BALANCE DISORDER [None]
  - TREATMENT NONCOMPLIANCE [None]
